FAERS Safety Report 22654818 (Version 1)
Quarter: 2023Q2

REPORT INFORMATION
  Report Type: Report from Study
  Country: US (occurrence: US)
  Receive Date: 20230629
  Receipt Date: 20230629
  Transmission Date: 20230721
  Serious: Yes (Other)
  Sender: FDA-Public Use
  Company Number: US-TAIHOP-2023-005120

PATIENT
  Age: 49 Year
  Sex: Female
  Weight: 65.77 kg

DRUGS (6)
  1. LYTGOBI [Suspect]
     Active Substance: FUTIBATINIB
     Indication: Pharyngeal cancer
     Route: 048
     Dates: start: 20230503
  2. AZITHROMYCIN [Concomitant]
     Active Substance: AZITHROMYCIN
     Indication: Product used for unknown indication
  3. PRENATAL GUMMIES [Concomitant]
     Indication: Product used for unknown indication
     Dosage: GUMMIES
  4. PROTONIX [Concomitant]
     Active Substance: PANTOPRAZOLE SODIUM
     Indication: Product used for unknown indication
  5. REHMANNIA 6 [Concomitant]
     Indication: Product used for unknown indication
  6. ZOFRAN [Concomitant]
     Active Substance: ONDANSETRON HYDROCHLORIDE
     Indication: Product used for unknown indication

REACTIONS (4)
  - Neuropathy peripheral [Unknown]
  - Dry skin [Unknown]
  - Pruritus [Unknown]
  - Off label use [Unknown]
